FAERS Safety Report 5374373-X (Version None)
Quarter: 2007Q2

REPORT INFORMATION
  Report Type: 
  Country: None (occurrence: None)
  Receive Date: 20070628
  Receipt Date: 20070628
  Transmission Date: 20071010
  Serious: Yes (Other)
  Sender: FDA-Public Use
  Company Number: None

PATIENT
  Sex: Male
  Weight: 77.2 kg

DRUGS (2)
  1. GAMIMUNE N [Suspect]
     Indication: IMMUNODEFICIENCY COMMON VARIABLE
     Dosage: ADJUSTED MONTHLY IV DRIP
     Route: 041
     Dates: start: 20020101
  2. GAMUNEX [Suspect]
     Indication: IMMUNODEFICIENCY COMMON VARIABLE
     Dosage: 45 GRAMS Q 4 WEEKS IV DRIP
     Route: 041

REACTIONS (1)
  - HEPATITIS C VIRUS [None]
